FAERS Safety Report 18996936 (Version 1)
Quarter: 2021Q1

REPORT INFORMATION
  Report Type: Spontaneous
  Country: HU (occurrence: HU)
  Receive Date: 20210311
  Receipt Date: 20210311
  Transmission Date: 20210420
  Serious: Yes (Hospitalization, Other)
  Sender: FDA-Public Use
  Company Number: NVSC2021HU049972

PATIENT
  Age: 75 Year

DRUGS (6)
  1. ELTROMBOPAG [Suspect]
     Active Substance: ELTROMBOPAG
     Dosage: 25 MG (DAILY/EVERY OTHER DAY/EVERY THIRD DAY/ INCREASED OR DECREASED BY A QUARTER OF A TABLET IN DAI
     Route: 065
     Dates: start: 20161205
  2. CLOPIDOGREL [Concomitant]
     Active Substance: CLOPIDOGREL BISULFATE
     Indication: PRODUCT USED FOR UNKNOWN INDICATION
     Dosage: 75 MG, QD
     Route: 065
     Dates: start: 201608, end: 20161205
  3. ELTROMBOPAG [Suspect]
     Active Substance: ELTROMBOPAG
     Indication: IMMUNE THROMBOCYTOPENIA
     Dosage: 25 MG
     Route: 065
     Dates: start: 201603, end: 2016
  4. ELTROMBOPAG [Suspect]
     Active Substance: ELTROMBOPAG
     Dosage: 50 MG
     Route: 065
     Dates: start: 2016, end: 2016
  5. ELTROMBOPAG [Suspect]
     Active Substance: ELTROMBOPAG
     Dosage: 75 MG
     Route: 065
     Dates: start: 2016, end: 2016
  6. ELTROMBOPAG [Suspect]
     Active Substance: ELTROMBOPAG
     Dosage: 50 MG
     Route: 065
     Dates: start: 2016, end: 20160829

REACTIONS (6)
  - Drug hypersensitivity [Not Recovered/Not Resolved]
  - Drug ineffective [Not Recovered/Not Resolved]
  - Transient ischaemic attack [Unknown]
  - Platelet count decreased [Unknown]
  - Therapeutic product effect decreased [Unknown]
  - Platelet count increased [Unknown]

NARRATIVE: CASE EVENT DATE: 2016
